FAERS Safety Report 8805189 (Version 2)
Quarter: 2015Q1

REPORT INFORMATION
  Report Type: Report from Study
  Country: US (occurrence: US)
  Receive Date: 20120924
  Receipt Date: 20150311
  Transmission Date: 20150721
  Serious: Yes (Death, Hospitalization)
  Sender: FDA-Public Use
  Company Number: US-ROCHE-1122943

PATIENT
  Age: 58 Year
  Sex: Male

DRUGS (8)
  1. AVASTIN [Suspect]
     Active Substance: BEVACIZUMAB
     Indication: LUNG NEOPLASM MALIGNANT
     Route: 042
     Dates: start: 20080428
  2. ALIMTA [Concomitant]
     Active Substance: PEMETREXED DISODIUM
  3. FOLIC ACID. [Concomitant]
     Active Substance: FOLIC ACID
  4. GEMCITABINE [Concomitant]
     Active Substance: GEMCITABINE\GEMCITABINE HYDROCHLORIDE
  5. VITAMIN B12 [Concomitant]
     Active Substance: CYANOCOBALAMIN
     Indication: ANAEMIA
  6. TAXOL [Concomitant]
     Active Substance: PACLITAXEL
  7. ARANESP [Concomitant]
     Active Substance: DARBEPOETIN ALFA
     Indication: ANAEMIA
  8. CARBOPLATIN. [Concomitant]
     Active Substance: CARBOPLATIN

REACTIONS (12)
  - Weight decreased [Unknown]
  - Fatigue [Unknown]
  - Decreased appetite [Unknown]
  - Asthenia [Unknown]
  - Cough [Unknown]
  - Alopecia [Unknown]
  - Death [Fatal]
  - Breath sounds abnormal [Unknown]
  - Eyelid ptosis [Unknown]
  - Disease progression [Unknown]
  - Dry skin [Unknown]
  - Dyspnoea [Unknown]

NARRATIVE: CASE EVENT DATE: 20080613
